FAERS Safety Report 7000269-3 (Version None)
Quarter: 2010Q3

REPORT INFORMATION
  Report Type: 
  Country: None (occurrence: None)
  Receive Date: 20100920
  Receipt Date: 20100505
  Transmission Date: 20110219
  Serious: No
  Sender: FDA-Public Use
  Company Number: US-ASTRAZENECA-2010SE19561

PATIENT
  Age: 47 Year
  Sex: Female
  Weight: 127 kg

DRUGS (14)
  1. SEROQUEL [Suspect]
     Indication: BIPOLAR DISORDER
     Dosage: TOTAL DAILY DOSE 800 MG, DOSE FREQUENCY BID
     Route: 048
     Dates: start: 20080101, end: 20100422
  2. SEROQUEL [Suspect]
     Dosage: 200 MG IN MORNING AND 600 MG AT NIGHT
     Route: 048
     Dates: start: 20080101
  3. RESTORIL [Concomitant]
  4. PROZAC [Concomitant]
  5. GENUVIA [Concomitant]
  6. BENTYL [Concomitant]
  7. REGLAN [Concomitant]
  8. SYNTHROID [Concomitant]
  9. NEXIUM [Concomitant]
  10. ZOCOR [Concomitant]
  11. COZAAR [Concomitant]
  12. VALIUM [Concomitant]
  13. PLACQUINAL [Concomitant]
  14. LYRICA [Concomitant]

REACTIONS (6)
  - AGITATION [None]
  - ANXIETY [None]
  - DRUG DOSE OMISSION [None]
  - INSOMNIA [None]
  - MALAISE [None]
  - VOMITING [None]
